FAERS Safety Report 15468394 (Version 1)
Quarter: 2018Q4

REPORT INFORMATION
  Report Type: Spontaneous
  Country: JP (occurrence: JP)
  Receive Date: 20181005
  Receipt Date: 20181005
  Transmission Date: 20190204
  Serious: Yes (Death, Other)
  Sender: FDA-Public Use
  Company Number: JP-PURDUE-GBR-2018-0059891

PATIENT
  Sex: Male

DRUGS (1)
  1. OXINORM (OXYCODONE HYDROCHLORIDE) [Suspect]
     Active Substance: OXYCODONE HYDROCHLORIDE
     Indication: GASTRIC CANCER
     Dosage: 2.5 MG, QID
     Route: 048

REACTIONS (3)
  - Respiratory depression [Recovering/Resolving]
  - Prescribed overdose [Unknown]
  - Malignant neoplasm progression [Fatal]
